FAERS Safety Report 24676003 (Version 1)
Quarter: 2024Q4

REPORT INFORMATION
  Report Type: Report from Study
  Country: DE (occurrence: DE)
  Receive Date: 20241128
  Receipt Date: 20241128
  Transmission Date: 20250114
  Serious: Yes (Hospitalization)
  Sender: ABBVIE
  Company Number: DE-ABBVIE-6019361

PATIENT
  Age: 69 Year
  Sex: Male

DRUGS (1)
  1. FOSCARBIDOPA\FOSLEVODOPA [Suspect]
     Active Substance: FOSCARBIDOPA\FOSLEVODOPA
     Indication: Parkinson^s disease
     Dosage: CRN: 0.20ML/H; CR: 0.32ML/H; CRH: 0.36ML/H; ED: 0.20ML
     Route: 058
     Dates: start: 20241018

REACTIONS (15)
  - General physical health deterioration [Unknown]
  - On and off phenomenon [Unknown]
  - Musculoskeletal stiffness [Unknown]
  - Fatigue [Unknown]
  - Mobility decreased [Unknown]
  - Malaise [Unknown]
  - Fatigue [Unknown]
  - Mobility decreased [Unknown]
  - Angina pectoris [Unknown]
  - Fatigue [Unknown]
  - Device delivery system issue [Unknown]
  - Tremor [Unknown]
  - Unevaluable event [Unknown]
  - Somnolence [Unknown]
  - General physical health deterioration [Unknown]
